FAERS Safety Report 9420664 (Version 3)
Quarter: 2013Q3

REPORT INFORMATION
  Report Type: Report from Study
  Country: NZ (occurrence: NZ)
  Receive Date: 20130725
  Receipt Date: 20130916
  Transmission Date: 20140515
  Serious: Yes (Hospitalization)
  Sender: FDA-Public Use
  Company Number: PHHY2013NZ078110

PATIENT
  Age: 31 Year
  Sex: Female
  Weight: 95 kg

DRUGS (5)
  1. CLOZARIL [Suspect]
     Indication: SCHIZOPHRENIA
     Dosage: 500 MG, DAILY
     Dates: start: 20080521, end: 20130503
  2. TERAZOSIN [Concomitant]
     Indication: SALIVARY HYPERSECRETION
     Dosage: 2 MG, NOCTE
     Route: 048
  3. ZOPICLONE [Concomitant]
     Indication: SLEEP DISORDER
     Dosage: 7.5 MG, PRN
     Route: 048
  4. DOCUSATE SODIUM [Concomitant]
     Indication: CONSTIPATION
     Dosage: 50 MG, UNK
  5. SENNOSIDE [Concomitant]
     Indication: CONSTIPATION
     Dosage: UNK UKN, BID
     Route: 048

REACTIONS (6)
  - Aggression [Recovered/Resolved]
  - Abnormal behaviour [Recovered/Resolved]
  - Delusion of grandeur [Recovered/Resolved]
  - Paranoia [Recovered/Resolved]
  - Malaise [Unknown]
  - Therapeutic response decreased [Recovered/Resolved]
